FAERS Safety Report 24623488 (Version 1)
Quarter: 2024Q4

REPORT INFORMATION
  Report Type: Spontaneous
  Country: US (occurrence: US)
  Receive Date: 20241115
  Receipt Date: 20241115
  Transmission Date: 20250115
  Serious: Yes (Other)
  Sender: TEVA
  Company Number: US-TEVA-VS-3262382

PATIENT
  Age: 61 Year
  Sex: Female

DRUGS (2)
  1. AUSTEDO XR [Suspect]
     Active Substance: DEUTETRABENAZINE
     Indication: Tardive dyskinesia
     Route: 065
  2. AUSTEDO XR [Suspect]
     Active Substance: DEUTETRABENAZINE
     Indication: Tardive dyskinesia
     Route: 065

REACTIONS (5)
  - Tardive dyskinesia [Unknown]
  - Mobility decreased [Unknown]
  - Fall [Unknown]
  - Sedation [Unknown]
  - Living in residential institution [Unknown]
